FAERS Safety Report 10024371 (Version 1)
Quarter: 2014Q1

REPORT INFORMATION
  Report Type: Spontaneous
  Country: FR (occurrence: FR)
  Receive Date: 20140320
  Receipt Date: 20140320
  Transmission Date: 20141002
  Serious: Yes (Other)
  Sender: FDA-Public Use
  Company Number: PHHY2014FR032597

PATIENT
  Sex: Female

DRUGS (3)
  1. VOLTARENE LP [Suspect]
     Indication: TENDONITIS
     Dosage: 75 MG, BID
     Route: 048
     Dates: start: 20140310
  2. IXPRIM [Suspect]
     Indication: PAIN
     Dosage: UNK, BID
     Dates: start: 20140310
  3. ESOMEPRAZOLE [Concomitant]
     Indication: GASTRITIS PROPHYLAXIS
     Dosage: UNK UKN, QD
     Route: 048
     Dates: start: 20140310

REACTIONS (7)
  - Loss of consciousness [Unknown]
  - Abdominal pain upper [Recovered/Resolved]
  - Blood pressure decreased [Not Recovered/Not Resolved]
  - Abdominal pain [Unknown]
  - Malaise [Recovered/Resolved]
  - Vomiting [Recovered/Resolved]
  - Dizziness [Unknown]
